FAERS Safety Report 16022870 (Version 1)
Quarter: 2019Q2

REPORT INFORMATION
  Report Type: Spontaneous
  Country: US (occurrence: US)
  Receive Date: 20190301
  Receipt Date: 20190301
  Transmission Date: 20190711
  Serious: Yes (Other)
  Sender: FDA-Public Use
  Company Number: None

PATIENT
  Age: 68 Year
  Sex: Female
  Weight: 45 kg

DRUGS (8)
  1. LIPITOR [Concomitant]
     Active Substance: ATORVASTATIN CALCIUM
  2. VITAMIN D3 [Concomitant]
     Active Substance: CHOLECALCIFEROL
  3. LEVAQUIN [Suspect]
     Active Substance: LEVOFLOXACIN
     Indication: ATYPICAL PNEUMONIA
     Route: 048
     Dates: start: 20190118, end: 20190128
  4. MULTIVITAMIN [Concomitant]
     Active Substance: VITAMINS
  5. XANAX [Concomitant]
     Active Substance: ALPRAZOLAM
  6. VITAMIN C [Concomitant]
     Active Substance: ASCORBIC ACID
  7. BLOOD BUILDER [Concomitant]
  8. PROZAC [Concomitant]
     Active Substance: FLUOXETINE HYDROCHLORIDE

REACTIONS (1)
  - Pain [None]

NARRATIVE: CASE EVENT DATE: 20190118
